FAERS Safety Report 4322201-3 (Version None)
Quarter: 2004Q1

REPORT INFORMATION
  Report Type: 
  Country: None (occurrence: None)
  Receive Date: 20040319
  Receipt Date: 20040218
  Transmission Date: 20041129
  Serious: Yes (Death, Life-Threatening)
  Sender: FDA-Public Use
  Company Number: 2004SE00838

PATIENT
  Age: 76 Year
  Sex: Male
  Weight: 68 kg

DRUGS (7)
  1. BLOPRESS [Suspect]
     Indication: HYPERTENSION
     Dosage: 8 MG DAILY PO
     Route: 048
     Dates: end: 20030516
  2. UNIPHYL [Suspect]
     Indication: ASTHMA
     Dosage: 200 MG DAILY PO
     Route: 048
     Dates: start: 20030106, end: 20030225
  3. AMLODIPINE BESYLATE [Concomitant]
  4. AZOSEMIDE [Concomitant]
  5. GLYBURIDE [Concomitant]
  6. BEZAFIBRATE [Concomitant]
  7. BENZBROMARONE [Concomitant]

REACTIONS (8)
  - ASTHMA [None]
  - BLOOD CREATININE INCREASED [None]
  - BLOOD GLUCOSE INCREASED [None]
  - DISEASE PROGRESSION [None]
  - HYPOALBUMINAEMIA [None]
  - PNEUMONIA [None]
  - PROTEIN TOTAL INCREASED [None]
  - TOXIC SKIN ERUPTION [None]
